FAERS Safety Report 8400514-3 (Version None)
Quarter: 2012Q2

REPORT INFORMATION
  Report Type: 
  Country: None (occurrence: None)
  Receive Date: 20120531
  Receipt Date: 20120524
  Transmission Date: 20120825
  Serious: Yes (Hospitalization, Other)
  Sender: FDA-Public Use
  Company Number: BR-ROCHE-704409

PATIENT
  Sex: Female
  Weight: 90 kg

DRUGS (38)
  1. MABTHERA [Suspect]
     Dosage: DOSAGE: 100 MG/10 ML
     Route: 042
     Dates: start: 20100825, end: 20100901
  2. PREDNISONE TAB [Suspect]
     Indication: PRODUCT USED FOR UNKNOWN INDICATION
     Route: 065
  3. PREDNISONE TAB [Suspect]
     Route: 065
  4. TIBOLONE [Concomitant]
     Dosage: DRUG REPORTED: LIVOLON
  5. ACETAMINOPHEN [Concomitant]
     Indication: PREMEDICATION
  6. OS-CAL +D [Concomitant]
  7. METHOTREXATE [Concomitant]
  8. DORFLEX [Concomitant]
  9. DIPYRONE TAB [Concomitant]
     Dosage: DRUG REPORTED: NOVALGEX
  10. CYCLOBENZAPRINE HCL [Concomitant]
  11. TRAMADOL HCL [Concomitant]
  12. OMEPRAZOLE [Concomitant]
  13. MABTHERA [Suspect]
     Indication: RHEUMATOID ARTHRITIS
     Route: 042
     Dates: start: 20080101, end: 20080101
  14. DICLOFENAC [Concomitant]
     Indication: PAIN
     Dosage: DRUG REPORTED: BELFAREN
  15. UNKNOWN MEDICATION [Concomitant]
     Dosage: 20/12.5 MG
  16. CALCIUM CARBONATE [Concomitant]
  17. PREDNISONE TAB [Suspect]
     Route: 065
  18. LANSOPRAZOLE [Concomitant]
  19. UNKNOWN MEDICATION [Concomitant]
  20. AMITRIPTYLINE HCL [Concomitant]
  21. PRESSOTEC [Concomitant]
  22. ACTONEL [Concomitant]
  23. TYLENOL [Concomitant]
     Indication: PREMEDICATION
  24. TIBOLONE [Concomitant]
  25. KETOPROFEN [Concomitant]
     Dosage: FORM: ENTERIC. TRADE NAME: ARTROSIL
  26. BONIVA [Concomitant]
  27. RESFEDRYL [Concomitant]
     Dosage: FREQUENCY: EVERY 6 HOUR
  28. MABTHERA [Suspect]
     Dosage: ROUTE: ENDOVENOUS, FORM AND FREQUENCY: 2 INFUSIONS; 100 MG/10 ML
     Route: 042
     Dates: start: 20090915, end: 20091009
  29. CLONAZEPAM [Concomitant]
  30. FOLIC ACID [Concomitant]
  31. ULTRACET [Concomitant]
  32. OS-CAL +D [Concomitant]
  33. DICLOFENAC SODIUM [Concomitant]
  34. AMITRIPTYLINE HCL [Concomitant]
  35. MABTHERA [Suspect]
     Route: 042
     Dates: start: 20090901, end: 20090901
  36. LYRICA [Concomitant]
  37. KETOPROFEN [Concomitant]
  38. DRAMIN [Concomitant]
     Indication: PREMEDICATION

REACTIONS (34)
  - BACK PAIN [None]
  - DIARRHOEA [None]
  - OROPHARYNGEAL PAIN [None]
  - SWELLING [None]
  - PAIN IN EXTREMITY [None]
  - VOMITING [None]
  - FORMICATION [None]
  - DYSPHONIA [None]
  - PRURITUS [None]
  - ABDOMINAL PAIN [None]
  - MALAISE [None]
  - FATIGUE [None]
  - DYSENTERY [None]
  - NASOPHARYNGITIS [None]
  - MEDICAL DEVICE COMPLICATION [None]
  - NAUSEA [None]
  - HEADACHE [None]
  - FALL [None]
  - PELVIC PAIN [None]
  - SPINAL PAIN [None]
  - TIBIA FRACTURE [None]
  - HYPERHIDROSIS [None]
  - LOWER LIMB FRACTURE [None]
  - OSTEOARTHRITIS [None]
  - ARTHRALGIA [None]
  - DRY MOUTH [None]
  - ABDOMINAL DISTENSION [None]
  - WEIGHT INCREASED [None]
  - HYPERTENSION [None]
  - CATARACT [None]
  - PAIN [None]
  - MOBILITY DECREASED [None]
  - SKIN EXFOLIATION [None]
  - BREAST ENLARGEMENT [None]
